FAERS Safety Report 5267575-4 (Version None)
Quarter: 2007Q1

REPORT INFORMATION
  Report Type: 
  Country: None (occurrence: None)
  Receive Date: 20070316
  Receipt Date: 20070308
  Transmission Date: 20070707
  Serious: Yes (Other)
  Sender: FDA-Public Use
  Company Number: ES-AMGEN-UK214686

PATIENT
  Sex: Female

DRUGS (5)
  1. ARANESP [Suspect]
     Route: 058
     Dates: start: 20060523, end: 20060801
  2. FOLIC ACID [Concomitant]
     Route: 065
  3. PREDNISONE [Concomitant]
     Route: 065
  4. ASPIRIN [Concomitant]
     Route: 065
  5. OMEPRAZOLE [Concomitant]
     Route: 065

REACTIONS (1)
  - CAESAREAN SECTION [None]
